FAERS Safety Report 9583784 (Version 1)
Quarter: 2013Q4

REPORT INFORMATION
  Report Type: Spontaneous
  Country: US (occurrence: US)
  Receive Date: 20131002
  Receipt Date: 20131002
  Transmission Date: 20140711
  Serious: No
  Sender: FDA-Public Use
  Company Number: US-AMGEN-USASP2013049601

PATIENT
  Age: 61 Year
  Sex: Female

DRUGS (7)
  1. ENBREL [Suspect]
     Indication: PRODUCT USED FOR UNKNOWN INDICATION
     Dosage: 50 MG, QWK
     Route: 058
  2. ALPRAZOLAM [Concomitant]
     Dosage: 1 MG/ML, UNK
  3. RECLAST [Concomitant]
     Dosage: 5/100 ML, UNK
  4. CHLORTHALIDONE [Concomitant]
     Dosage: 25 MG, UNK
  5. FELODIPINE [Concomitant]
     Dosage: 10 MG, UNK
  6. CALCIUM D3+K1 [Concomitant]
     Dosage: 750 MG, UNK
  7. DEXILANT [Concomitant]
     Dosage: 30 MG, UNK

REACTIONS (2)
  - Local swelling [Unknown]
  - Rash erythematous [Unknown]
